FAERS Safety Report 11045362 (Version 1)
Quarter: 2015Q2

REPORT INFORMATION
  Report Type: Report from Study
  Country: CH (occurrence: CH)
  Receive Date: 20150417
  Receipt Date: 20150417
  Transmission Date: 20150821
  Serious: Yes (Congenital Anomaly)
  Sender: FDA-Public Use
  Company Number: CH-009507513-1504CHE015444

PATIENT

DRUGS (2)
  1. MIRTAZAPINE. [Suspect]
     Active Substance: MIRTAZAPINE
     Dosage: UNK
     Route: 064
  2. RISPERIDONE. [Concomitant]
     Active Substance: RISPERIDONE
     Route: 064

REACTIONS (5)
  - Pulmonary valve stenosis [Unknown]
  - Pilonidal cyst [Unknown]
  - Foetal exposure during pregnancy [Recovered/Resolved]
  - Maternal drugs affecting foetus [Recovered/Resolved]
  - Atrial septal defect [Unknown]
